FAERS Safety Report 19400716 (Version 2)
Quarter: 2021Q2

REPORT INFORMATION
  Report Type: Other
  Country: CA (occurrence: CA)
  Receive Date: 20210610
  Receipt Date: 20210621
  Transmission Date: 20210717
  Serious: Yes (Hospitalization, Other)
  Sender: FDA-Public Use
  Company Number: CA-APOTEX-2021AP013167

PATIENT
  Age: 44 Year
  Sex: Male

DRUGS (31)
  1. ZOPICLONE [Interacting]
     Active Substance: ZOPICLONE
     Indication: NEURALGIA
  2. TEMAZEPAM. [Interacting]
     Active Substance: TEMAZEPAM
     Indication: PAIN
     Dosage: UNK, UNKNOWN
     Route: 065
  3. AMITRIPTYLINE WITH PERPHENAZINE [Interacting]
     Active Substance: AMITRIPTYLINE\PERPHENAZINE
     Indication: PAIN
     Dosage: UNK
     Route: 065
  4. CBD OIL [Interacting]
     Active Substance: CANNABIDIOL\HERBALS
     Indication: PAIN
     Dosage: UNK
     Route: 065
  5. KETAMINE [Interacting]
     Active Substance: KETAMINE
     Indication: PAIN
     Dosage: UNK
     Route: 040
  6. DULOXETIN TEVA [Interacting]
     Active Substance: DULOXETINE HYDROCHLORIDE
     Indication: NEURALGIA
  7. DEXAMETHASONE. [Concomitant]
     Active Substance: DEXAMETHASONE
     Indication: PROPHYLAXIS
     Dosage: UNK
     Route: 042
  8. DULOXETINE. [Suspect]
     Active Substance: DULOXETINE
     Indication: PAIN
     Dosage: UNK
     Route: 065
  9. CANNABIDIOL [Interacting]
     Active Substance: CANNABIDIOL
     Indication: NEURALGIA
  10. KETAMINE [Interacting]
     Active Substance: KETAMINE
     Dosage: 0.5 MILLIGRAM/KILOGRAM
     Route: 042
  11. DEXAMETHASONE. [Interacting]
     Active Substance: DEXAMETHASONE
     Indication: PROPHYLAXIS
     Dosage: UNK, QD
     Route: 042
  12. LIDOCAINE. [Interacting]
     Active Substance: LIDOCAINE
     Indication: ANALGESIC THERAPY
     Dosage: 5.0 MILLIGRAM/KILOGRAM
     Route: 065
  13. DRONABINOL. [Interacting]
     Active Substance: DRONABINOL
     Indication: ANALGESIC THERAPY
     Dosage: 0.3 GRAM
     Route: 065
  14. MAGNESIUM SULFATE. [Concomitant]
     Active Substance: MAGNESIUM SULFATE
     Indication: NEURALGIA
     Dosage: UNK
     Route: 040
  15. AMITRIPTYLINE [Interacting]
     Active Substance: AMITRIPTYLINE
     Indication: NEURALGIA
  16. DULOXETINE. [Interacting]
     Active Substance: DULOXETINE
     Indication: NEURALGIA
  17. TEMAZEPAM. [Interacting]
     Active Substance: TEMAZEPAM
     Indication: NEURALGIA
  18. CANNABIDIOL [Interacting]
     Active Substance: CANNABIDIOL
     Indication: PAIN
     Dosage: UNK
     Route: 065
  19. KETAMINE [Interacting]
     Active Substance: KETAMINE
     Dosage: 1.6 MILLIGRAM/KILOGRAM, Q.H.
     Route: 042
  20. MAGNESIUM SULFATE. [Interacting]
     Active Substance: MAGNESIUM SULFATE
     Indication: ANALGESIC THERAPY
     Dosage: 50.0 MILLIGRAM/KILOGRAM, UNKNOWN
     Route: 065
  21. DRONABINOL. [Interacting]
     Active Substance: DRONABINOL
     Dosage: UNK
     Route: 065
  22. LIDOCAINE. [Concomitant]
     Active Substance: LIDOCAINE
     Indication: NEURALGIA
  23. MAGNESIUM SULFATE. [Concomitant]
     Active Substance: MAGNESIUM SULFATE
     Indication: ANALGESIC THERAPY
     Dosage: UNK
     Route: 041
  24. ONDANSETRON [Interacting]
     Active Substance: ONDANSETRON
     Indication: PROPHYLAXIS
     Dosage: UNK, QD
     Route: 042
  25. MIDAZOLAM. [Interacting]
     Active Substance: MIDAZOLAM
     Indication: PROPHYLAXIS
     Dosage: UNK, QD
     Route: 042
  26. LIDOCAINE. [Concomitant]
     Active Substance: LIDOCAINE
     Indication: ANALGESIC THERAPY
     Dosage: UNK
     Route: 042
  27. ONDANSETRON [Concomitant]
     Active Substance: ONDANSETRON
     Indication: PROPHYLAXIS
     Dosage: UNK
     Route: 042
  28. AMITRIPTYLINE [Interacting]
     Active Substance: AMITRIPTYLINE
     Indication: PAIN
     Dosage: UNK, UNKNOWN
     Route: 065
  29. ZOPICLONE [Interacting]
     Active Substance: ZOPICLONE
     Indication: PAIN
     Dosage: UNK, UNKNOWN
     Route: 065
  30. KETAMINE [Interacting]
     Active Substance: KETAMINE
     Indication: NEURALGIA
     Dosage: 0.5 MILLIGRAM/KILOGRAM
     Route: 042
  31. DULOXETIN TEVA [Interacting]
     Active Substance: DULOXETINE HYDROCHLORIDE
     Indication: PAIN
     Dosage: UNK
     Route: 065

REACTIONS (3)
  - Behaviour disorder [Recovered/Resolved]
  - Drug level increased [Recovered/Resolved]
  - Drug interaction [Recovered/Resolved]
